FAERS Safety Report 7669975-1 (Version None)
Quarter: 2011Q3

REPORT INFORMATION
  Report Type: 
  Country: None (occurrence: None)
  Receive Date: 20110808
  Receipt Date: 20110803
  Transmission Date: 20111222
  Serious: Yes (Life-Threatening, Hospitalization)
  Sender: FDA-Public Use
  Company Number: PHHO2011SE07966

PATIENT
  Sex: Female
  Weight: 45 kg

DRUGS (9)
  1. ASPIRIN [Suspect]
  2. OMEPRAZOLE [Concomitant]
     Dosage: UNK
  3. PREDNISOLONE [Concomitant]
     Indication: RENAL TRANSPLANT
     Dosage: 5 MG, QD
     Route: 048
     Dates: start: 20101008
  4. BLINDED AEB071 [Suspect]
     Indication: RENAL TRANSPLANT
     Dosage: CODE NOT BROKEN
     Route: 048
     Dates: start: 20101006
  5. PROGRAF [Suspect]
     Indication: RENAL TRANSPLANT
     Dosage: UNK
     Route: 048
  6. ALENDRONIC ACID [Suspect]
     Indication: OSTEOPOROSIS
     Dosage: 70 MG, QW
     Dates: start: 20101103
  7. CORTISONE ACETATE [Suspect]
  8. BLINDED ERL 080A [Suspect]
     Indication: RENAL TRANSPLANT
     Dosage: CODE NOT BROKEN
     Route: 048
     Dates: start: 20101006
  9. BLINDED NO TREATMENT RECEIVED [Suspect]
     Indication: RENAL TRANSPLANT
     Dosage: CODE NOT BROKEN
     Route: 048
     Dates: start: 20101006

REACTIONS (3)
  - OESOPHAGITIS [None]
  - ANAEMIA [None]
  - GASTROINTESTINAL CANDIDIASIS [None]
